FAERS Safety Report 9376301 (Version 1)
Quarter: 2013Q2

REPORT INFORMATION
  Report Type: Spontaneous
  Country: US (occurrence: None)
  Receive Date: 20130628
  Receipt Date: 20130628
  Transmission Date: 20140414
  Serious: Yes (Life-Threatening, Hospitalization)
  Sender: FDA-Public Use
  Company Number: None

PATIENT
  Age: 23 Year
  Sex: Male
  Weight: 51 kg

DRUGS (1)
  1. OMONTYS [Suspect]
     Indication: NEPHROGENIC ANAEMIA
     Dates: start: 20121128, end: 20121128

REACTIONS (3)
  - Anaphylactic shock [None]
  - Dyspnoea [None]
  - Hypotension [None]
